FAERS Safety Report 15990225 (Version 1)
Quarter: 2019Q1

REPORT INFORMATION
  Report Type: Spontaneous
  Country: US (occurrence: US)
  Receive Date: 20190221
  Receipt Date: 20190221
  Transmission Date: 20190418
  Serious: No
  Sender: FDA-Public Use
  Company Number: US-PFIZER INC-2019074018

PATIENT
  Age: 63 Year
  Sex: Female

DRUGS (1)
  1. SUTENT [Suspect]
     Active Substance: SUNITINIB MALATE
     Indication: RENAL CELL CARCINOMA STAGE III
     Dosage: 37.5 MG, CYCLIC, (DAILY FOR 2 WEEKS AND THEN 1 WEEK OFF)
     Route: 048
     Dates: start: 201809

REACTIONS (5)
  - Fatigue [Unknown]
  - Nausea [Unknown]
  - Dyspepsia [Unknown]
  - Vomiting [Unknown]
  - Blood pressure increased [Unknown]
